FAERS Safety Report 5782442-5 (Version None)
Quarter: 2008Q2

REPORT INFORMATION
  Report Type: 
  Country: None (occurrence: None)
  Receive Date: 20080623
  Receipt Date: 20080609
  Transmission Date: 20081010
  Serious: Yes (Hospitalization, Other)
  Sender: FDA-Public Use
  Company Number: PHHY2008BR07943

PATIENT
  Age: 12 Year
  Sex: Female
  Weight: 47 kg

DRUGS (2)
  1. RITALIN [Suspect]
     Indication: ATTENTION DEFICIT/HYPERACTIVITY DISORDER
     Dosage: 1 DF, UNK
     Route: 048
     Dates: end: 20080513
  2. RITALIN [Suspect]
     Dosage: 1 TAB/DAY
     Route: 048
     Dates: end: 20080513

REACTIONS (3)
  - CONDITION AGGRAVATED [None]
  - OSTEOCHONDROMA [None]
  - SURGERY [None]
